FAERS Safety Report 7938822 (Version 4)
Quarter: 2022Q2

REPORT INFORMATION
  Report Type: Spontaneous
  Country: US (occurrence: US)
  Receive Date: 20110510
  Receipt Date: 20220527
  Transmission Date: 20220721
  Serious: Yes (Death, Life-Threatening, Hospitalization, Other)
  Sender: FDA-Public Use
  Company Number: US-ALEXION-A201001400

PATIENT
  Age: 17 Year
  Sex: Male

DRUGS (6)
  1. SOLIRIS [Suspect]
     Active Substance: ECULIZUMAB
     Indication: Malignant atrophic papulosis
     Dosage: UNK
     Route: 042
     Dates: start: 200912
  2. SOLIRIS [Suspect]
     Active Substance: ECULIZUMAB
     Indication: Off label use
     Dosage: 1500 MG, Q2W
     Route: 065
  3. TREPROSTINIL [Suspect]
     Active Substance: TREPROSTINIL
     Dosage: UNK
     Route: 042
  4. TREPROSTINIL [Suspect]
     Active Substance: TREPROSTINIL
     Dosage: UNK
     Route: 048
     Dates: start: 2014
  5. TREPROSTINIL [Suspect]
     Active Substance: TREPROSTINIL
     Dosage: UNK
     Route: 058
  6. TREPROSTINIL [Suspect]
     Active Substance: TREPROSTINIL
     Indication: Malignant atrophic papulosis
     Dosage: UNK
     Route: 065

REACTIONS (8)
  - Pericarditis constrictive [Fatal]
  - Cardiac arrest [Fatal]
  - Pulmonary embolism [Fatal]
  - Malignant atrophic papulosis [Recovering/Resolving]
  - Condition aggravated [Recovering/Resolving]
  - Restrictive pulmonary disease [Unknown]
  - Right ventricular dysfunction [Unknown]
  - Off label use [Unknown]

NARRATIVE: CASE EVENT DATE: 20100101
